FAERS Safety Report 8288023-6 (Version None)
Quarter: 2012Q2

REPORT INFORMATION
  Report Type: 
  Country: None (occurrence: None)
  Receive Date: 20120416
  Receipt Date: 20120409
  Transmission Date: 20120825
  Serious: Yes (Hospitalization)
  Sender: FDA-Public Use
  Company Number: JP-GLAXOSMITHKLINE-B0783756A

PATIENT
  Sex: Male

DRUGS (5)
  1. VALTREX [Suspect]
     Indication: HERPES ZOSTER
     Dosage: 3000MG PER DAY
     Route: 048
     Dates: start: 20120102, end: 20120109
  2. ACETAMINOPHEN [Concomitant]
     Indication: ANALGESIC THERAPY
     Dosage: 600MG PER DAY
     Route: 048
     Dates: start: 20120104, end: 20120112
  3. ZOVIRAX [Concomitant]
     Indication: KERATITIS VIRAL
     Dosage: .5G PER DAY
     Route: 061
     Dates: start: 20120104, end: 20120114
  4. AZUNOL [Concomitant]
     Indication: ANTIINFLAMMATORY THERAPY
     Dosage: 1G PER DAY
     Route: 061
     Dates: start: 20120102, end: 20120114
  5. SELBEX [Concomitant]
     Indication: PROPHYLAXIS AGAINST GASTROINTESTINAL ULCER
     Dosage: 150MG PER DAY
     Route: 048
     Dates: start: 20120104, end: 20120112

REACTIONS (2)
  - MUSCLE SPASMS [None]
  - FACIAL SPASM [None]
